FAERS Safety Report 11853628 (Version 1)
Quarter: 2015Q4

REPORT INFORMATION
  Report Type: Spontaneous
  Country: US (occurrence: US)
  Receive Date: 20151219
  Receipt Date: 20151219
  Transmission Date: 20160305
  Serious: No
  Sender: FDA-Public Use
  Company Number: US-BAUSCH-BL-2015-019480

PATIENT
  Age: 48 Year
  Sex: Female

DRUGS (4)
  1. RISPERDAL [Concomitant]
     Active Substance: RISPERIDONE
     Indication: HUNTINGTON^S DISEASE
  2. RISPERDAL [Concomitant]
     Active Substance: RISPERIDONE
  3. XENAZINE [Suspect]
     Active Substance: TETRABENAZINE
     Indication: HUNTINGTON^S DISEASE
     Dosage: 1 TAB EVERY MORNING AND 2 TABS EVERY EVENING
     Route: 048
     Dates: start: 20150727
  4. RISPERDAL [Concomitant]
     Active Substance: RISPERIDONE

REACTIONS (5)
  - Drug ineffective [Unknown]
  - Condition aggravated [Recovering/Resolving]
  - Somnolence [Unknown]
  - Middle insomnia [Unknown]
  - Movement disorder [Recovering/Resolving]

NARRATIVE: CASE EVENT DATE: 201508
